FAERS Safety Report 16018825 (Version 1)
Quarter: 2019Q1

REPORT INFORMATION
  Report Type: Spontaneous
  Country: US (occurrence: US)
  Receive Date: 20190228
  Receipt Date: 20190228
  Transmission Date: 20190418
  Serious: No
  Sender: FDA-Public Use
  Company Number: US-SA-2019SA054784

PATIENT
  Age: 66 Year
  Sex: Male

DRUGS (1)
  1. PRALUENT [Suspect]
     Active Substance: ALIROCUMAB
     Indication: HYPERLIPIDAEMIA
     Dosage: 75 MG, QOW
     Route: 058
     Dates: start: 20180720

REACTIONS (6)
  - Fatigue [Unknown]
  - Influenza [Unknown]
  - Muscle spasms [Unknown]
  - Pain in extremity [Unknown]
  - Rhinorrhoea [Unknown]
  - Nasopharyngitis [Unknown]
